FAERS Safety Report 16429875 (Version 9)
Quarter: 2020Q3

REPORT INFORMATION
  Report Type: Report from Study
  Country: BE (occurrence: BE)
  Receive Date: 20190614
  Receipt Date: 20200204
  Transmission Date: 20201104
  Serious: Yes (Hospitalization, Other)
  Sender: FDA-Public Use
  Company Number: BE-ROCHE-2277665

PATIENT
  Age: 67 Year
  Sex: Male
  Weight: 67.4 kg

DRUGS (118)
  1. CYCLOPHOSPHAMIDE. [Suspect]
     Active Substance: CYCLOPHOSPHAMIDE
     Indication: DIFFUSE LARGE B-CELL LYMPHOMA
     Dosage: DATE OF MOST RECENT DOSE OF CYCLOPHOSPHAMIDE PRIOR TO SAE ONSET: 28/FEB/2019 (1462.5 MG)?LAST RECEIV
     Route: 042
     Dates: start: 20190228
  2. RITUXIMAB. [Suspect]
     Active Substance: RITUXIMAB
     Indication: DIFFUSE LARGE B-CELL LYMPHOMA
     Dosage: DATE OF MOST RECENT DOSE OF RITUXIMAB OF 731.25 MG PRIOR TO SAE ONSET: 28/FEB/2019?DATE OF MOST RECE
     Route: 042
     Dates: start: 20190228
  3. HYDROCORTISONE. [Concomitant]
     Active Substance: HYDROCORTISONE
     Route: 048
     Dates: start: 20190311
  4. L?THYROXINE [LEVOTHYROXINE] [Concomitant]
     Active Substance: LEVOTHYROXINE
     Route: 048
     Dates: start: 20190306
  5. NOBITEN [NEBIVOLOL] [Concomitant]
     Indication: HYPERTENSION
     Route: 048
     Dates: end: 20190314
  6. PARACETAMOL [Concomitant]
     Active Substance: ACETAMINOPHEN
     Route: 048
     Dates: start: 20190620, end: 20190620
  7. BACTRIM [Concomitant]
     Active Substance: SULFAMETHOXAZOLE\TRIMETHOPRIM
     Indication: LOWER URINARY TRACT SYMPTOMS
     Dosage: 800/160 MG?PNEUMOCYSTIS INFECTION PROPHYLAXIS
     Route: 048
     Dates: start: 20190222, end: 20190301
  8. ALLOPURINOL. [Concomitant]
     Active Substance: ALLOPURINOL
     Route: 048
     Dates: start: 20190302, end: 20190311
  9. ONDANSETRON [Concomitant]
     Active Substance: ONDANSETRON
     Route: 042
     Dates: start: 20190509, end: 20190509
  10. ONDANSETRON [Concomitant]
     Active Substance: ONDANSETRON
     Route: 042
     Dates: start: 20190620, end: 20190620
  11. TAVEGYL [Concomitant]
     Active Substance: CLEMASTINE FUMARATE
     Route: 042
     Dates: start: 20190418, end: 20190418
  12. LONQUEX [Concomitant]
     Active Substance: LIPEGFILGRASTIM
     Route: 058
     Dates: start: 20190621, end: 20190621
  13. OXYBUTYNINE [OXYBUTYNIN] [Concomitant]
     Active Substance: OXYBUTYNIN
     Indication: LOWER URINARY TRACT SYMPTOMS
     Route: 048
     Dates: start: 20190301, end: 20190308
  14. SOLU?CORTEF [Concomitant]
     Active Substance: HYDROCORTISONE SODIUM SUCCINATE
     Route: 042
     Dates: start: 20190630, end: 20190702
  15. LITICAN [ALIZAPRIDE HYDROCHLORIDE] [Concomitant]
     Indication: NAUSEA
     Route: 042
     Dates: start: 20190426, end: 20190426
  16. LITICAN [ALIZAPRIDE HYDROCHLORIDE] [Concomitant]
     Route: 042
     Dates: start: 20190318, end: 20190318
  17. MAGNESIUM SULPHATE [MAGNESIUM SULFATE] [Concomitant]
     Active Substance: MAGNESIUM SULFATE
     Route: 042
     Dates: start: 20190520, end: 20190522
  18. PROMAGNOR [Concomitant]
     Active Substance: MAGNESIUM
     Route: 050
     Dates: start: 20190220, end: 20190322
  19. CLOPIDOGREL [Concomitant]
     Active Substance: CLOPIDOGREL BISULFATE
     Indication: THROMBOSIS PROPHYLAXIS
     Route: 048
     Dates: start: 20190225
  20. LAXOBERON [Concomitant]
     Active Substance: SODIUM PICOSULFATE
     Indication: CONSTIPATION
     Route: 048
     Dates: start: 20190213, end: 20190224
  21. PARACETAMOL [Concomitant]
     Active Substance: ACETAMINOPHEN
     Route: 048
     Dates: start: 20190328, end: 20190328
  22. PARACETAMOL [Concomitant]
     Active Substance: ACETAMINOPHEN
     Route: 048
     Dates: start: 20190418, end: 20190418
  23. PARACETAMOL [Concomitant]
     Active Substance: ACETAMINOPHEN
     Route: 048
     Dates: start: 20190509, end: 20190509
  24. BACTRIM [Concomitant]
     Active Substance: SULFAMETHOXAZOLE\TRIMETHOPRIM
     Route: 048
     Dates: start: 20190301
  25. DAFALGAN [Concomitant]
     Active Substance: ACETAMINOPHEN
     Route: 048
     Dates: start: 20190228, end: 20190228
  26. TAVEGYL [Concomitant]
     Active Substance: CLEMASTINE FUMARATE
     Route: 042
     Dates: start: 20190620, end: 20190620
  27. ZANTAC [Concomitant]
     Active Substance: RANITIDINE HYDROCHLORIDE
     Indication: PREMEDICATION
     Route: 042
     Dates: start: 20190328, end: 20190328
  28. SOLU?CORTEF [Concomitant]
     Active Substance: HYDROCORTISONE SODIUM SUCCINATE
     Route: 042
     Dates: start: 20190608, end: 20190610
  29. POTASSIUM CHLORIDE. [Concomitant]
     Active Substance: POTASSIUM CHLORIDE
     Route: 042
     Dates: start: 20190519, end: 20190522
  30. ULTRA K [Concomitant]
     Route: 048
     Dates: start: 20190702, end: 20190822
  31. NANOGAM [Concomitant]
     Active Substance: HUMAN IMMUNOGLOBULIN G
     Indication: HYPOGAMMAGLOBULINAEMIA
     Route: 042
     Dates: start: 20190521, end: 20190703
  32. ISOSORBIDE DINITRATE. [Concomitant]
     Active Substance: ISOSORBIDE DINITRATE
     Indication: PROCTALGIA
     Dosage: OTHER
     Route: 054
     Dates: start: 20190610, end: 20190612
  33. SODIUM CHLORIDE. [Concomitant]
     Active Substance: SODIUM CHLORIDE
     Indication: HYPONATRAEMIA
     Route: 048
     Dates: start: 20190317, end: 20190320
  34. PREDNISONE. [Suspect]
     Active Substance: PREDNISONE
     Indication: DIFFUSE LARGE B-CELL LYMPHOMA
     Dosage: DATE OF MOST RECENT DOSE OF PREDNISONE PRIOR TO SAE ONSET: 28/FEB/2019 (80 MG)?ON DAYS 1?5 OF EVERY
     Route: 048
     Dates: start: 20190228
  35. GLUCOPHAGE [Concomitant]
     Active Substance: METFORMIN HYDROCHLORIDE
     Indication: TYPE 2 DIABETES MELLITUS
     Route: 048
  36. LIPITOR [Concomitant]
     Active Substance: ATORVASTATIN CALCIUM
     Indication: HYPERCHOLESTEROLAEMIA
     Route: 048
  37. LORMETAZEPAM [Concomitant]
     Active Substance: LORMETAZEPAM
     Indication: INSOMNIA
     Route: 048
     Dates: start: 20190212, end: 20190307
  38. PARACETAMOL [Concomitant]
     Active Substance: ACETAMINOPHEN
     Indication: PAIN
     Route: 048
     Dates: start: 20190222, end: 20190222
  39. FASTURTEC [Concomitant]
     Active Substance: RASBURICASE
     Route: 042
     Dates: start: 20190223, end: 20190224
  40. LASIX [Concomitant]
     Active Substance: FUROSEMIDE
     Indication: FLUID RETENTION
     Route: 042
     Dates: start: 20190223, end: 20190223
  41. LASIX [Concomitant]
     Active Substance: FUROSEMIDE
     Route: 042
     Dates: start: 20190701, end: 20190701
  42. CICALFATE [Concomitant]
     Route: 061
     Dates: start: 20190701, end: 20190705
  43. LONQUEX [Concomitant]
     Active Substance: LIPEGFILGRASTIM
     Route: 058
     Dates: start: 20190419, end: 20190419
  44. SOLU?CORTEF [Concomitant]
     Active Substance: HYDROCORTISONE SODIUM SUCCINATE
     Route: 042
     Dates: start: 20190314, end: 20190314
  45. ULTRA K [Concomitant]
     Route: 048
     Dates: start: 20190521, end: 20190628
  46. ULTRA K [Concomitant]
     Route: 048
     Dates: start: 20190311, end: 20190312
  47. BISOPROLOL FUMARATE. [Concomitant]
     Active Substance: BISOPROLOL FUMARATE
     Indication: HYPERTENSION
     Route: 048
     Dates: start: 20190704
  48. HYDROCORTISONE. [Concomitant]
     Active Substance: HYDROCORTISONE
     Indication: HYPOPITUITARISM
     Dosage: LYMPHOMA CONTROL
     Route: 048
     Dates: start: 20190208, end: 20190222
  49. PARACETAMOL [Concomitant]
     Active Substance: ACETAMINOPHEN
     Route: 048
     Dates: start: 20190531, end: 20190531
  50. CICALFATE [Concomitant]
     Indication: DRY SKIN
     Dosage: 1 OTHER
     Route: 061
     Dates: start: 20190226, end: 20190322
  51. ONDANSETRON [Concomitant]
     Active Substance: ONDANSETRON
     Route: 042
     Dates: start: 20190227, end: 20190302
  52. TAVEGYL [Concomitant]
     Active Substance: CLEMASTINE FUMARATE
     Indication: PREMEDICATION
     Route: 042
     Dates: start: 20190228, end: 20190228
  53. LONQUEX [Concomitant]
     Active Substance: LIPEGFILGRASTIM
     Route: 058
     Dates: start: 20190510, end: 20190510
  54. SOLU?CORTEF [Concomitant]
     Active Substance: HYDROCORTISONE SODIUM SUCCINATE
     Route: 042
     Dates: start: 20190425, end: 20190429
  55. MAGNESIUM SULPHATE [MAGNESIUM SULFATE] [Concomitant]
     Active Substance: MAGNESIUM SULFATE
     Indication: HYPOMAGNESAEMIA
     Route: 042
     Dates: start: 20190429, end: 20190430
  56. PROMAGNOR [Concomitant]
     Active Substance: MAGNESIUM
     Indication: HYPOMAGNESAEMIA
     Route: 048
     Dates: start: 20190501
  57. CLEXANE [Concomitant]
     Active Substance: ENOXAPARIN SODIUM
     Indication: THROMBOSIS PROPHYLAXIS
     Route: 058
     Dates: start: 20190518, end: 20190521
  58. LINISOL [Concomitant]
     Active Substance: LIDOCAINE HYDROCHLORIDE
     Route: 037
     Dates: start: 20190314, end: 20190314
  59. DENTIO [Concomitant]
     Dosage: 1 OTHER
     Route: 048
     Dates: start: 20190313, end: 20190322
  60. AMLODIPINE [Concomitant]
     Active Substance: AMLODIPINE BESYLATE
     Indication: TACHYCARDIA
     Route: 048
     Dates: start: 20190702, end: 20190702
  61. L?THYROXINE [LEVOTHYROXINE] [Concomitant]
     Active Substance: LEVOTHYROXINE
     Indication: HYPOTHYROIDISM
     Route: 048
     Dates: start: 20190214, end: 20190305
  62. LAXOBERON [Concomitant]
     Active Substance: SODIUM PICOSULFATE
     Route: 048
     Dates: start: 20190314, end: 20190315
  63. PARACETAMOL [Concomitant]
     Active Substance: ACETAMINOPHEN
     Indication: PREMEDICATION
     Route: 042
     Dates: start: 20190223, end: 20190223
  64. PARACETAMOL [Concomitant]
     Active Substance: ACETAMINOPHEN
     Route: 042
     Dates: start: 20190301, end: 20190301
  65. TAMSULOSINE [TAMSULOSIN] [Concomitant]
     Active Substance: TAMSULOSIN
     Indication: LOWER URINARY TRACT SYMPTOMS
     Route: 048
     Dates: start: 20190222, end: 20190313
  66. SOLU?MEDROL [Concomitant]
     Active Substance: METHYLPREDNISOLONE SODIUM SUCCINATE
     Route: 042
     Dates: start: 20190223, end: 20190225
  67. ALLOPURINOL. [Concomitant]
     Active Substance: ALLOPURINOL
     Route: 048
     Dates: start: 20190331
  68. ASAFLOW [Concomitant]
     Active Substance: ASPIRIN
     Route: 048
     Dates: start: 20190226
  69. FLUCONAZOLE. [Concomitant]
     Active Substance: FLUCONAZOLE
     Route: 048
     Dates: start: 20190228
  70. TAVEGYL [Concomitant]
     Active Substance: CLEMASTINE FUMARATE
     Route: 042
     Dates: start: 20190328, end: 20190328
  71. LONQUEX [Concomitant]
     Active Substance: LIPEGFILGRASTIM
     Route: 058
     Dates: start: 20190601, end: 20190601
  72. ZANTAC [Concomitant]
     Active Substance: RANITIDINE HYDROCHLORIDE
     Route: 042
     Dates: start: 20190418, end: 20190418
  73. ZANTAC [Concomitant]
     Active Substance: RANITIDINE HYDROCHLORIDE
     Route: 042
     Dates: start: 20190509, end: 20190509
  74. METHOTREXATE. [Concomitant]
     Active Substance: METHOTREXATE
     Dosage: IT CHEMO
     Route: 037
     Dates: start: 20190509, end: 20190509
  75. METHOTREXATE. [Concomitant]
     Active Substance: METHOTREXATE
     Dosage: IT CHEMO
     Route: 037
     Dates: start: 20190531, end: 20190531
  76. METHOTREXATE. [Concomitant]
     Active Substance: METHOTREXATE
     Dosage: IT CHEMO
     Route: 037
     Dates: start: 20190620, end: 20190620
  77. UREUM [Concomitant]
     Indication: DRY SKIN
     Dosage: 1 OTHER
     Route: 061
     Dates: start: 20190418
  78. SOLU?CORTEF [Concomitant]
     Active Substance: HYDROCORTISONE SODIUM SUCCINATE
     Route: 042
     Dates: start: 20190518, end: 20190521
  79. ULTRA K [Concomitant]
     Indication: HYPOKALAEMIA
     Dosage: 20 OTHER
     Route: 048
     Dates: start: 20190429, end: 20190430
  80. LASIX [Concomitant]
     Active Substance: FUROSEMIDE
     Route: 042
     Dates: start: 20190311, end: 20190311
  81. CICALFATE [Concomitant]
     Indication: PROCTALGIA
     Dosage: OTHER
     Route: 054
     Dates: start: 20190610, end: 20190612
  82. ONDANSETRON [Concomitant]
     Active Substance: ONDANSETRON
     Route: 042
     Dates: start: 20190418, end: 20190418
  83. ONDANSETRON [Concomitant]
     Active Substance: ONDANSETRON
     Route: 042
     Dates: start: 20190531, end: 20190531
  84. TAVEGYL [Concomitant]
     Active Substance: CLEMASTINE FUMARATE
     Route: 042
     Dates: start: 20190509, end: 20190509
  85. LONQUEX [Concomitant]
     Active Substance: LIPEGFILGRASTIM
     Route: 058
     Dates: start: 20190329, end: 20190329
  86. ZOLPIDEM [Concomitant]
     Active Substance: ZOLPIDEM TARTRATE
     Indication: INSOMNIA
     Route: 048
     Dates: start: 20190524
  87. DEXERYL [GLYCEROL;PARAFFIN, LIQUID;WHITE SOFT PARAFFIN] [Concomitant]
     Active Substance: GLYCERIN\MINERAL OIL\PETROLATUM
     Route: 061
     Dates: start: 20190701, end: 20190705
  88. HYDROCORTISONE. [Concomitant]
     Active Substance: HYDROCORTISONE
     Route: 048
     Dates: start: 20190305, end: 20190308
  89. LORMETAZEPAM [Concomitant]
     Active Substance: LORMETAZEPAM
     Route: 048
     Dates: start: 20190427, end: 20190427
  90. FASTURTEC [Concomitant]
     Active Substance: RASBURICASE
     Route: 042
     Dates: start: 20190227, end: 20190301
  91. ONDANSETRON [Concomitant]
     Active Substance: ONDANSETRON
     Route: 042
     Dates: start: 20190328, end: 20190328
  92. OMEPRAZOLE. [Concomitant]
     Active Substance: OMEPRAZOLE
     Route: 048
     Dates: start: 20190228
  93. ZANTAC [Concomitant]
     Active Substance: RANITIDINE HYDROCHLORIDE
     Route: 042
     Dates: start: 20190531, end: 20190531
  94. EMCONCOR [Concomitant]
     Active Substance: BISOPROLOL FUMARATE
     Indication: HYPERTENSION
     Route: 048
     Dates: start: 20190418, end: 20190628
  95. LITICAN [ALIZAPRIDE HYDROCHLORIDE] [Concomitant]
     Route: 042
     Dates: start: 20190311, end: 20190311
  96. POTASSIUM CHLORIDE. [Concomitant]
     Active Substance: POTASSIUM CHLORIDE
     Indication: HYPOKALAEMIA
     Dosage: 20 OTHER
     Route: 042
     Dates: start: 20190428, end: 20190430
  97. XANAX [Concomitant]
     Active Substance: ALPRAZOLAM
     Route: 048
     Dates: start: 20190429, end: 20190429
  98. ZOFRAN [Concomitant]
     Active Substance: ONDANSETRON HYDROCHLORIDE
     Indication: NAUSEA
     Route: 048
     Dates: start: 20190329, end: 20190424
  99. TEMESTA [LORAZEPAM] [Concomitant]
     Active Substance: LORAZEPAM
     Indication: INSOMNIA
     Route: 048
     Dates: start: 20190313, end: 20190313
  100. DOXORUBICIN [Suspect]
     Active Substance: DOXORUBICIN
     Indication: DIFFUSE LARGE B-CELL LYMPHOMA
     Dosage: DATE OF MOST RECENT DOSE OF DOXORUBICIN PRIOR TO SAE ONSET: 28/FEB/2019 (97.5 MG)?LAST RECEIVED: 09/
     Route: 042
     Dates: start: 20190228
  101. POLATUZUMAB VEDOTIN. [Suspect]
     Active Substance: POLATUZUMAB VEDOTIN
     Indication: DIFFUSE LARGE B-CELL LYMPHOMA
     Dosage: DATE OF MOST RECENT DOSE OF POLATUZUMAB VEDOTIN PRIOR TO SAE ONSET: 28/FEB/2019 (136.8 MG)?DATE OF M
     Route: 042
     Dates: start: 20190228
  102. PLACEBO [Suspect]
     Active Substance: UNSPECIFIED INGREDIENT
     Indication: DIFFUSE LARGE B-CELL LYMPHOMA
     Dosage: DATE OF MOST RECENT DOSE OF PLACEBO PRIOR TO SAE: 28/FEB/2019?DATE OF MOST RECENT DOSE OF PLACEBO PR
     Route: 042
     Dates: start: 20190228
  103. MICARDIS [Concomitant]
     Active Substance: TELMISARTAN
     Indication: HYPERTENSION
     Route: 048
     Dates: end: 20190314
  104. TRADONAL [Concomitant]
     Active Substance: TRAMADOL HYDROCHLORIDE
     Indication: PAIN
     Route: 048
     Dates: start: 20190208
  105. ACICLOVIR [Concomitant]
     Active Substance: ACYCLOVIR
     Dosage: PROPHYLAXIS H. ZOSTER INFECTION
     Route: 048
     Dates: start: 20190223
  106. FASTURTEC [Concomitant]
     Active Substance: RASBURICASE
     Route: 042
     Dates: start: 20190328, end: 20190330
  107. ALLOPURINOL. [Concomitant]
     Active Substance: ALLOPURINOL
     Route: 048
     Dates: start: 20190225, end: 20190227
  108. MEDROL [Concomitant]
     Active Substance: METHYLPREDNISOLONE
     Route: 048
     Dates: start: 20190226, end: 20190227
  109. TAVEGYL [Concomitant]
     Active Substance: CLEMASTINE FUMARATE
     Route: 042
     Dates: start: 20190531, end: 20190531
  110. LONQUEX [Concomitant]
     Active Substance: LIPEGFILGRASTIM
     Indication: BLOOD DISORDER PROPHYLAXIS
     Route: 058
     Dates: start: 20190301, end: 20190301
  111. ZANTAC [Concomitant]
     Active Substance: RANITIDINE HYDROCHLORIDE
     Route: 042
     Dates: start: 20190620, end: 20190620
  112. METHOTREXATE. [Concomitant]
     Active Substance: METHOTREXATE
     Route: 037
     Dates: start: 20190418, end: 20190418
  113. SOLU?CORTEF [Concomitant]
     Active Substance: HYDROCORTISONE SODIUM SUCCINATE
     Route: 042
     Dates: start: 20190308, end: 20190311
  114. POTASSIUM CHLORIDE. [Concomitant]
     Active Substance: POTASSIUM CHLORIDE
     Route: 042
     Dates: start: 20190702, end: 20190703
  115. MAGNESIUM SULPHATE [MAGNESIUM SULFATE] [Concomitant]
     Active Substance: MAGNESIUM SULFATE
     Route: 042
     Dates: start: 20190702, end: 20190703
  116. SODIUM CHLORIDE. [Concomitant]
     Active Substance: SODIUM CHLORIDE
     Indication: HYPONATRAEMIA
     Route: 042
     Dates: start: 20190429, end: 20190430
  117. CLEXANE [Concomitant]
     Active Substance: ENOXAPARIN SODIUM
     Route: 058
     Dates: start: 20190317, end: 20190321
  118. TRAMADOL. [Concomitant]
     Active Substance: TRAMADOL
     Indication: PAIN
     Route: 042
     Dates: start: 20190311, end: 20190311

REACTIONS (6)
  - Peripheral sensorimotor neuropathy [Not Recovered/Not Resolved]
  - Febrile neutropenia [Recovered/Resolved]
  - Tumour lysis syndrome [Recovered/Resolved]
  - Bronchitis bacterial [Recovered/Resolved]
  - Febrile neutropenia [Recovered/Resolved]
  - Cerebellar ataxia [Recovered/Resolved]

NARRATIVE: CASE EVENT DATE: 20190301
